FAERS Safety Report 18820273 (Version 1)
Quarter: 2021Q1

REPORT INFORMATION
  Report Type: Spontaneous
  Country: AU (occurrence: AU)
  Receive Date: 20210202
  Receipt Date: 20210202
  Transmission Date: 20210419
  Serious: Yes (Other)
  Sender: FDA-Public Use
  Company Number: NVSC2021AU022930

PATIENT
  Age: 53 Year

DRUGS (2)
  1. ESTRADOT [Suspect]
     Active Substance: ESTRADIOL
     Indication: HORMONE THERAPY
     Dosage: 50 MCG/HR, QW2
     Route: 061
  2. CYPROTERONE ACETATE [Suspect]
     Active Substance: CYPROTERONE ACETATE
     Indication: HORMONE THERAPY
     Dosage: 50 MG, QD
     Route: 065

REACTIONS (3)
  - Hyperprolactinaemia [Recovering/Resolving]
  - Prolactin-producing pituitary tumour [Unknown]
  - Product use in unapproved indication [Unknown]
